FAERS Safety Report 15118724 (Version 1)
Quarter: 2018Q3

REPORT INFORMATION
  Report Type: Spontaneous
  Country: PL (occurrence: PL)
  Receive Date: 20180709
  Receipt Date: 20180709
  Transmission Date: 20181010
  Serious: Yes (Other)
  Sender: FDA-Public Use
  Company Number: PL-ACCORD-069298

PATIENT
  Age: 46 Year
  Sex: Male

DRUGS (5)
  1. TACROLIMUS. [Suspect]
     Active Substance: TACROLIMUS
     Indication: IMMUNOSUPPRESSANT DRUG THERAPY
  2. VALGANCICLOVIR/VALGANCICLOVIR HYDROCHLORIDE [Concomitant]
  3. MYCOPHENOLIC ACID. [Suspect]
     Active Substance: MYCOPHENOLIC ACID
     Indication: IMMUNOSUPPRESSANT DRUG THERAPY
  4. PREDNISONE. [Suspect]
     Active Substance: PREDNISONE
     Indication: IMMUNOSUPPRESSANT DRUG THERAPY
  5. SULFAMETHOXAZOLE/TRIMETHOPRIM [Concomitant]

REACTIONS (3)
  - Bronchopulmonary aspergillosis [Recovered/Resolved]
  - Escherichia infection [Unknown]
  - Candida infection [Unknown]
